FAERS Safety Report 12038153 (Version 1)
Quarter: 2016Q1

REPORT INFORMATION
  Report Type: Spontaneous
  Country: None (occurrence: None)
  Receive Date: 20160205
  Receipt Date: 20160205
  Transmission Date: 20160526
  Serious: Yes (Life-Threatening, Hospitalization)
  Sender: FDA-Public Use
  Company Number: None

PATIENT
  Age: 43 Year
  Sex: Female
  Weight: 79.38 kg

DRUGS (8)
  1. LISINOPRIL HCTZ [Concomitant]
     Active Substance: HYDROCHLOROTHIAZIDE\LISINOPRIL
  2. ARMOUR THYROID [Concomitant]
     Active Substance: THYROID, PORCINE
  3. IBUPROFEN. [Concomitant]
     Active Substance: IBUPROFEN
  4. CALCITRIOL 0.25MCG STRIDES [Suspect]
     Active Substance: CALCITRIOL
     Indication: HYPOCALCAEMIA
     Dosage: 3 PILLS TWICE DAILY TAKEN BY MOUTH?UNDER 3 WEEKS
     Route: 048
  5. ENDOCET [Concomitant]
     Active Substance: ACETAMINOPHEN\OXYCODONE HYDROCHLORIDE
  6. CALTRATE WITH VITAMIN D [Concomitant]
     Active Substance: CALCIUM CARBONATE\CHOLECALCIFEROL
  7. FLEXERIL [Concomitant]
     Active Substance: CYCLOBENZAPRINE HYDROCHLORIDE
  8. MAGNESIUM SUPPLEMENTS [Concomitant]

REACTIONS (9)
  - Blood potassium decreased [None]
  - Palpitations [None]
  - Blood magnesium decreased [None]
  - Blood magnesium abnormal [None]
  - Product substitution issue [None]
  - Headache [None]
  - Blood potassium abnormal [None]
  - Hypercalcaemia [None]
  - Fatigue [None]

NARRATIVE: CASE EVENT DATE: 20150910
